FAERS Safety Report 17242052 (Version 1)
Quarter: 2020Q1

REPORT INFORMATION
  Report Type: Spontaneous
  Country: FR (occurrence: FR)
  Receive Date: 20200107
  Receipt Date: 20200107
  Transmission Date: 20200409
  Serious: Yes (Other)
  Sender: FDA-Public Use
  Company Number: FR-TEVA-2020-FR-1163280

PATIENT
  Sex: Female

DRUGS (11)
  1. VINCRISTINE [Suspect]
     Active Substance: VINCRISTINE
     Indication: BENIGN LUNG NEOPLASM
     Dosage: ON DAY 1; ADMINISTERED EVERY 3 WEEKS
     Route: 065
     Dates: start: 201604, end: 201609
  2. ENDOXAN [Suspect]
     Active Substance: CYCLOPHOSPHAMIDE
     Indication: BENIGN LUNG NEOPLASM
     Route: 065
     Dates: start: 201702, end: 201705
  3. YONDELIS [Suspect]
     Active Substance: TRABECTEDIN
     Indication: BENIGN LUNG NEOPLASM
     Dosage: RECEIVED IN EVERY 3 WEEKS
     Route: 065
     Dates: start: 201705, end: 201711
  4. TOPOTECAN [Suspect]
     Active Substance: TOPOTECAN HYDROCHLORIDE
     Indication: BENIGN LUNG NEOPLASM
     Dosage: RECEIVED ON DAY 1 AND 5; RECEIVED }13 CYCLES
     Route: 042
     Dates: start: 201801, end: 201807
  5. IFOSFAMIDE. [Suspect]
     Active Substance: IFOSFAMIDE
     Indication: BENIGN LUNG NEOPLASM
     Dosage: ON DAY 1 AND 2; ADMINISTERED EVERY 3 WEEKS
     Route: 065
     Dates: start: 201604, end: 201609
  6. TEMOZOLOMIDE. [Suspect]
     Active Substance: TEMOZOLOMIDE
     Indication: BENIGN LUNG NEOPLASM
     Dosage: ON DAY 1 AND 5; ADMINISTERED EVERY 3 WEEKS
     Route: 042
     Dates: start: 201604, end: 201609
  7. NAVELBINE [Suspect]
     Active Substance: VINORELBINE TARTRATE
     Indication: BENIGN LUNG NEOPLASM
     Dosage: RECEIVED ON DAY 1, 8 AND 15
     Route: 065
     Dates: start: 201702, end: 201705
  8. BEVACIZUMAB. [Suspect]
     Active Substance: BEVACIZUMAB
     Indication: BENIGN LUNG NEOPLASM
     Dosage: RECEIVED SIX MONTHS POST TOPOTECAN AND TEMOZOLOMIDE INITIATION; RECEIVED }6 CYCLES
     Route: 042
  9. ACTINOMYCIN D [Suspect]
     Active Substance: DACTINOMYCIN
     Indication: BENIGN LUNG NEOPLASM
     Dosage: ON DAY 1; ADMINISTERED EVERY 3 WEEKS
     Route: 065
     Dates: start: 201604, end: 201609
  10. IRINOTECAN [Suspect]
     Active Substance: IRINOTECAN
     Indication: BENIGN LUNG NEOPLASM
     Dosage: ON DAY 1 AND 5; ADMINISTERED EVERY 3 WEEKS
     Route: 042
     Dates: start: 201604, end: 201609
  11. TEMOZOLOMIDE. [Suspect]
     Active Substance: TEMOZOLOMIDE
     Dosage: ON DAY 1 AND 5; RECEIVED }13 CYCLES
     Route: 042
     Dates: start: 201801, end: 201807

REACTIONS (3)
  - Nausea [Unknown]
  - Neutropenia [Unknown]
  - Vomiting [Unknown]
